FAERS Safety Report 9308509 (Version 2)
Quarter: 2014Q1

REPORT INFORMATION
  Report Type: Spontaneous
  Country: US (occurrence: US)
  Receive Date: 20130524
  Receipt Date: 20140107
  Transmission Date: 20141002
  Serious: Yes (Other)
  Sender: FDA-Public Use
  Company Number: US-ROCHE-1046949

PATIENT
  Age: 39 Year
  Sex: Male
  Weight: 65.83 kg

DRUGS (2)
  1. ACCUTANE [Suspect]
     Indication: MUCOSAL INFLAMMATION
     Route: 065
     Dates: start: 1991
  2. ACCUTANE [Suspect]
     Route: 065
     Dates: start: 199206, end: 199207

REACTIONS (8)
  - Crohn^s disease [Unknown]
  - Anal fistula [Unknown]
  - Rectal fissure [Unknown]
  - Inflammatory bowel disease [Unknown]
  - Arthritis [Unknown]
  - Depression [Unknown]
  - Irritable bowel syndrome [Unknown]
  - Aphthous stomatitis [Unknown]
